FAERS Safety Report 5520767-9 (Version None)
Quarter: 2007Q4

REPORT INFORMATION
  Report Type: 
  Country: None (occurrence: None)
  Receive Date: 20071115
  Receipt Date: 20071115
  Transmission Date: 20080405
  Serious: Yes (Hospitalization, Other)
  Sender: FDA-Public Use
  Company Number: None

PATIENT
  Age: 23 Year
  Sex: Female
  Weight: 102.0593 kg

DRUGS (6)
  1. PEG-INTRON [Suspect]
     Indication: HEPATITIS C
     Dosage: 150 UG / 0.5 ML ONCE A WEEK SQ
     Route: 058
     Dates: start: 20070420, end: 20071005
  2. REBETOL [Suspect]
     Indication: HEPATITIS C
     Dosage: 400 MG TWICE A DAY PO
     Route: 048
     Dates: start: 20070420, end: 20071005
  3. ORTHO-NOVUM [Concomitant]
  4. ADDERALL 10 [Concomitant]
  5. VALIUM [Concomitant]
  6. AMITRIPTLINE HCL [Concomitant]

REACTIONS (3)
  - ERYTHEMA NODOSUM [None]
  - PRODUCTIVE COUGH [None]
  - SARCOIDOSIS [None]
